FAERS Safety Report 14338145 (Version 1)
Quarter: 2017Q4

REPORT INFORMATION
  Report Type: Spontaneous
  Country: US (occurrence: US)
  Receive Date: 20171228
  Receipt Date: 20171228
  Transmission Date: 20180321
  Serious: Yes (Other)
  Sender: FDA-Public Use
  Company Number: None

PATIENT
  Age: 40 Year
  Sex: Female
  Weight: 238 kg

DRUGS (2)
  1. VANCOMYCIN 1GM FRESENIUS KABI [Suspect]
     Active Substance: VANCOMYCIN HYDROCHLORIDE
     Indication: CELLULITIS
     Route: 042
     Dates: start: 20171218, end: 20171228
  2. VANCOMYCIN 10GM FRESENIUS KABI [Suspect]
     Active Substance: VANCOMYCIN
     Indication: CELLULITIS
     Route: 042
     Dates: start: 20171218, end: 20171228

REACTIONS (1)
  - Rash [None]

NARRATIVE: CASE EVENT DATE: 20171227
